FAERS Safety Report 15930881 (Version 1)
Quarter: 2019Q1

REPORT INFORMATION
  Report Type: Spontaneous
  Country: CA (occurrence: CA)
  Receive Date: 20190207
  Receipt Date: 20190207
  Transmission Date: 20190417
  Serious: Yes (Other)
  Sender: FDA-Public Use
  Company Number: CA-TEVA-2019-CA-1007793

PATIENT
  Age: 47 Year
  Sex: Male

DRUGS (15)
  1. CLONAZEPAM. [Concomitant]
     Active Substance: CLONAZEPAM
  2. COLESTID [Concomitant]
     Active Substance: COLESTIPOL HYDROCHLORIDE
     Dosage: 4 GRAM DAILY;
  3. HUMIRA [Concomitant]
     Active Substance: ADALIMUMAB
     Route: 065
  4. VITAMIN B12 [Concomitant]
     Active Substance: CYANOCOBALAMIN
     Dosage: 250 MILLIGRAM DAILY;
     Route: 048
  5. METHOTREXATE. [Suspect]
     Active Substance: METHOTREXATE
     Indication: PRODUCT USED FOR UNKNOWN INDICATION
     Route: 058
  6. PREDNISONE. [Concomitant]
     Active Substance: PREDNISONE
     Dosage: THERAPY DURATION: 55 DAYS
  7. PMS-ZOPICLONE [Concomitant]
     Active Substance: ZOPICLONE
     Indication: INSOMNIA
  8. RISPERIDONE. [Concomitant]
     Active Substance: RISPERIDONE
     Dosage: .5 MILLIGRAM DAILY;
  9. MINOXIDIL. [Concomitant]
     Active Substance: MINOXIDIL
     Route: 061
  10. PMS-HYDROMORPHONE [Concomitant]
     Active Substance: HYDROMORPHONE HYDROCHLORIDE
     Indication: PAIN
  11. ACT BUPROPION XL [Concomitant]
     Active Substance: BUPROPION
     Dosage: 300 MILLIGRAM DAILY;
     Route: 065
  12. PMS-LOPERAMIDE [Concomitant]
     Indication: DIARRHOEA
     Dosage: 4 MILLIGRAM DAILY;
  13. CELECOXIB. [Concomitant]
     Active Substance: CELECOXIB
     Dosage: 200 MILLIGRAM DAILY;
  14. SILDENAFIL CITRATE. [Concomitant]
     Active Substance: SILDENAFIL CITRATE
  15. VENLAFAXINE HYDROCHLORIDE. [Concomitant]
     Active Substance: VENLAFAXINE HYDROCHLORIDE
     Dosage: 75 MILLIGRAM DAILY;

REACTIONS (1)
  - Drug ineffective [Unknown]
